FAERS Safety Report 24582513 (Version 2)
Quarter: 2024Q4

REPORT INFORMATION
  Report Type: Report from Study
  Country: AR (occurrence: AR)
  Receive Date: 20241106
  Receipt Date: 20241124
  Transmission Date: 20250115
  Serious: Yes (Other)
  Sender: TAKEDA
  Company Number: AR-TAKEDA-2024TUS087927

PATIENT
  Age: 61 Year
  Sex: Male
  Weight: 80 kg

DRUGS (1)
  1. VEDOLIZUMAB [Suspect]
     Active Substance: VEDOLIZUMAB
     Indication: Crohn^s disease
     Dosage: 300 MILLIGRAM, Q4WEEKS

REACTIONS (3)
  - Haemorrhoids [Recovering/Resolving]
  - Viral infection [Recovering/Resolving]
  - Off label use [Unknown]

NARRATIVE: CASE EVENT DATE: 20240813
